FAERS Safety Report 8227824-7 (Version None)
Quarter: 2012Q1

REPORT INFORMATION
  Report Type: 
  Country: None (occurrence: None)
  Receive Date: 20120322
  Receipt Date: 20120319
  Transmission Date: 20120608
  Serious: Yes (Hospitalization)
  Sender: FDA-Public Use
  Company Number: FR-SANOFI-AVENTIS-2012SA018505

PATIENT
  Age: 86 Year
  Sex: Female

DRUGS (4)
  1. CORDARONE [Suspect]
     Dosage: STRENGTH: 200 MG
     Route: 048
     Dates: end: 20110624
  2. MULTAQ [Suspect]
     Dosage: STRENGTH: 400 MG
     Route: 048
     Dates: start: 20110624, end: 20111003
  3. BISOPROLOL FUMARATE AND HYDROCHLOROTHIAZIDE [Concomitant]
     Route: 048
  4. PREVISCAN [Concomitant]
     Route: 048

REACTIONS (1)
  - LUNG DISORDER [None]
